FAERS Safety Report 9066484 (Version 1)
Quarter: 2013Q1

REPORT INFORMATION
  Report Type: Report from Study
  Country: US (occurrence: US)
  Receive Date: 20130131
  Receipt Date: 20130131
  Transmission Date: 20140127
  Serious: No
  Sender: FDA-Public Use
  Company Number: US-ABBOTT-12P-163-1009085-00

PATIENT
  Age: 54 Year
  Sex: Female
  Weight: 69.01 kg

DRUGS (6)
  1. HUMIRA [Suspect]
     Indication: ARTHRITIS
     Dates: start: 20121113
  2. VITAMINS [Concomitant]
     Indication: VITAMIN SUPPLEMENTATION
  3. LATANOPROST EYE DROPS [Concomitant]
     Indication: GLAUCOMA
  4. OMEPRAZOLE [Concomitant]
     Indication: GASTROOESOPHAGEAL REFLUX DISEASE
  5. VICODIN [Concomitant]
     Indication: PAIN
  6. ALBUTEROL [Concomitant]
     Indication: ASTHMA

REACTIONS (7)
  - Off label use [Not Recovered/Not Resolved]
  - Myalgia [Not Recovered/Not Resolved]
  - Dyspnoea [Not Recovered/Not Resolved]
  - Pain [Not Recovered/Not Resolved]
  - Headache [Not Recovered/Not Resolved]
  - Arthralgia [Not Recovered/Not Resolved]
  - Pain in extremity [Not Recovered/Not Resolved]
